FAERS Safety Report 14572189 (Version 1)
Quarter: 2018Q1

REPORT INFORMATION
  Report Type: Spontaneous
  Country: SE (occurrence: SE)
  Receive Date: 20180226
  Receipt Date: 20180226
  Transmission Date: 20180509
  Serious: Yes (Other)
  Sender: FDA-Public Use
  Company Number: SE-AMGEN-SWESP2018023797

PATIENT
  Age: 70 Year
  Sex: Female

DRUGS (9)
  1. OMEPRAZOL [Concomitant]
     Active Substance: OMEPRAZOLE
     Dosage: UNK
  2. OXYNORM [Concomitant]
     Active Substance: OXYCODONE HYDROCHLORIDE
     Dosage: UNK
  3. LAXIRIVA [Concomitant]
     Active Substance: POLYETHYLENE GLYCOL 3350\POTASSIUM CHLORIDE\SODIUM BICARBONATE\SODIUM CHLORIDE
     Dosage: UNK
  4. PREGABALIN. [Concomitant]
     Active Substance: PREGABALIN
     Dosage: UNK
  5. INLYTA [Concomitant]
     Active Substance: AXITINIB
     Dosage: UNK
  6. XGEVA [Suspect]
     Active Substance: DENOSUMAB
     Indication: PRODUCT USED FOR UNKNOWN INDICATION
     Dosage: 120 MG, Q4WK
     Route: 058
     Dates: start: 20161125, end: 20180202
  7. CILAXORAL [Concomitant]
     Active Substance: SODIUM PICOSULFATE
     Dosage: UNK
  8. CALCICHEW [Concomitant]
     Active Substance: CALCIUM CARBONATE
     Dosage: UNK
  9. BETAPRED [Concomitant]
     Active Substance: BETAMETHASONE SODIUM PHOSPHATE
     Dosage: UNK

REACTIONS (1)
  - Osteonecrosis of jaw [Not Recovered/Not Resolved]

NARRATIVE: CASE EVENT DATE: 20180202
